FAERS Safety Report 23706113 (Version 5)
Quarter: 2025Q1

REPORT INFORMATION
  Report Type: Report from Study
  Country: IT (occurrence: IT)
  Receive Date: 20240404
  Receipt Date: 20250102
  Transmission Date: 20250409
  Serious: Yes (Hospitalization, Other)
  Sender: AMGEN
  Company Number: IT-SA-SAC20240111001959

PATIENT
  Age: 61 Year
  Sex: Female
  Weight: 58 kg

DRUGS (39)
  1. CARFILZOMIB [Suspect]
     Active Substance: CARFILZOMIB
     Indication: Plasma cell myeloma refractory
     Dosage: 112 MILLIGRAM/SQ. METER, QWK (56 MG/M2, BIW)
     Route: 065
     Dates: start: 20231218, end: 20240104
  2. CARFILZOMIB [Suspect]
     Active Substance: CARFILZOMIB
     Route: 065
     Dates: start: 20240118, end: 20240118
  3. CARFILZOMIB [Suspect]
     Active Substance: CARFILZOMIB
     Dosage: 20 MILLIGRAM/SQ. METER, Q2WK (20 MG/M2, QOW)
     Route: 065
     Dates: start: 20231120, end: 20231121
  4. CARFILZOMIB [Suspect]
     Active Substance: CARFILZOMIB
     Dosage: 56 MG/M2, BIW
     Route: 065
     Dates: start: 20231127, end: 20231128
  5. CARFILZOMIB [Suspect]
     Active Substance: CARFILZOMIB
     Route: 065
     Dates: start: 20240117, end: 20240201
  6. CARFILZOMIB [Suspect]
     Active Substance: CARFILZOMIB
     Route: 065
     Dates: start: 20240207, end: 20240208
  7. CARFILZOMIB [Suspect]
     Active Substance: CARFILZOMIB
     Dosage: 56 MG/M2, BIW (FOR 3 WEEKS)
     Route: 065
     Dates: start: 20240307, end: 20240322
  8. CARFILZOMIB [Suspect]
     Active Substance: CARFILZOMIB
     Dosage: 20 MILLIGRAM/SQ. METER, Q2WK (20 MG/M2, QOW)
     Route: 065
     Dates: start: 20231120, end: 20231126
  9. CARFILZOMIB [Suspect]
     Active Substance: CARFILZOMIB
     Dosage: 112 MILLIGRAM/SQ. METER, QWK (56 MG/M2, BIW (FOR 3 WEEKS)
     Route: 065
     Dates: start: 20240404, end: 20240419
  10. CARFILZOMIB [Suspect]
     Active Substance: CARFILZOMIB
     Dosage: 56 MG/M2, BIW
     Route: 065
     Dates: start: 20231127, end: 20231130
  11. CARFILZOMIB [Suspect]
     Active Substance: CARFILZOMIB
     Route: 065
     Dates: start: 20240207, end: 20240222
  12. DEXAMETHASONE [Suspect]
     Active Substance: DEXAMETHASONE
     Indication: Plasma cell myeloma refractory
     Dosage: 20 MILLIGRAM, Q3WK (20 MG, Q3W)
     Route: 065
     Dates: start: 20231120, end: 20231128
  13. DEXAMETHASONE [Suspect]
     Active Substance: DEXAMETHASONE
     Dosage: 4 MILLIGRAM, QD (4 MG, QD)
     Route: 065
     Dates: start: 20231204, end: 20231217
  14. DEXAMETHASONE [Suspect]
     Active Substance: DEXAMETHASONE
     Dosage: 40 MILLIGRAM, QWK (20 MG, BIW)
     Route: 065
     Dates: start: 20240103, end: 20240111
  15. DEXAMETHASONE [Suspect]
     Active Substance: DEXAMETHASONE
     Dosage: 4 MILLIGRAM, QD (4 MG, QD)
     Route: 065
     Dates: start: 20231218, end: 20240102
  16. DEXAMETHASONE [Suspect]
     Active Substance: DEXAMETHASONE
     Route: 065
     Dates: start: 20240117, end: 20240201
  17. DEXAMETHASONE [Suspect]
     Active Substance: DEXAMETHASONE
     Route: 065
     Dates: start: 20240307, end: 20240313
  18. DEXAMETHASONE [Suspect]
     Active Substance: DEXAMETHASONE
     Dosage: 20 MG, BIW (FOR 1 WEEK)
     Route: 065
     Dates: start: 20240411, end: 20240419
  19. DEXAMETHASONE [Suspect]
     Active Substance: DEXAMETHASONE
     Dosage: 25 MG, BIW (FIRST DAY 20 MG AND SECOND DAY 10 MG)
     Route: 065
     Dates: start: 20240314, end: 20240320
  20. DEXAMETHASONE [Suspect]
     Active Substance: DEXAMETHASONE
     Dosage: 25 MG, BIW (FIRST DAY 20 MG AND SECOND DAY 10 MG)
     Route: 065
     Dates: start: 20240321, end: 20240327
  21. DEXAMETHASONE [Suspect]
     Active Substance: DEXAMETHASONE
     Dosage: 30 MG, BIW(FIRST DAY 20 MG AND SECOND DAY 10 MG)
     Route: 065
     Dates: start: 20240404, end: 20240410
  22. DEXAMETHASONE [Suspect]
     Active Substance: DEXAMETHASONE
     Dosage: 25 MG, QW (FOR 3 WEEKS)
     Route: 065
     Dates: start: 20240207, end: 20240220
  23. ISATUXIMAB [Suspect]
     Active Substance: ISATUXIMAB
     Indication: Plasma cell myeloma refractory
     Dosage: 10 MG/KG, BIW
     Route: 065
     Dates: start: 20231218, end: 20240103
  24. ISATUXIMAB [Suspect]
     Active Substance: ISATUXIMAB
     Dosage: 10 MG/KG, QW
     Route: 065
     Dates: start: 20231120, end: 20231204
  25. ISATUXIMAB [Suspect]
     Active Substance: ISATUXIMAB
     Dosage: 10 MG/KG, QW
     Route: 065
     Dates: start: 20231211, end: 20231212
  26. ISATUXIMAB [Suspect]
     Active Substance: ISATUXIMAB
     Route: 065
     Dates: start: 20240117, end: 20240131
  27. ISATUXIMAB [Suspect]
     Active Substance: ISATUXIMAB
     Dosage: 10 MG/KG, BIW
     Route: 065
     Dates: start: 20240404, end: 20240418
  28. ISATUXIMAB [Suspect]
     Active Substance: ISATUXIMAB
     Dosage: 10 MG/KG, BIW
     Route: 065
     Dates: start: 20240207, end: 20240207
  29. ISATUXIMAB [Suspect]
     Active Substance: ISATUXIMAB
     Route: 065
     Dates: start: 20240307, end: 20240321
  30. ENOXAPARIN [Concomitant]
     Active Substance: ENOXAPARIN
     Indication: Immobile
     Route: 065
     Dates: start: 20231218, end: 20240122
  31. ENOXAPARIN [Concomitant]
     Active Substance: ENOXAPARIN
     Dates: start: 20240202, end: 20240221
  32. ENOXAPARIN [Concomitant]
     Active Substance: ENOXAPARIN
     Dates: start: 20240229
  33. LEVOTHYROXINE [Concomitant]
     Active Substance: LEVOTHYROXINE
     Indication: Autoimmune thyroiditis
     Route: 065
     Dates: start: 2018
  34. POTASSIUM CHLORIDE [Concomitant]
     Active Substance: POTASSIUM CHLORIDE
     Indication: Hypokalaemia
     Route: 065
     Dates: start: 20231123, end: 20231207
  35. ACYCLOVIR [Concomitant]
     Active Substance: ACYCLOVIR
     Indication: Prophylaxis
     Route: 065
     Dates: start: 20231120
  36. COTRIMOXAZOLE [Concomitant]
     Active Substance: SULFAMETHOXAZOLE\TRIMETHOPRIM
     Indication: Prophylaxis
     Route: 065
     Dates: start: 20231120
  37. LANSOPRAZOLE [Concomitant]
     Active Substance: LANSOPRAZOLE
     Indication: Gastrooesophageal reflux disease
     Route: 065
     Dates: start: 20231120
  38. ACETAMINOPHEN [Concomitant]
     Active Substance: ACETAMINOPHEN
     Indication: Prophylaxis
     Route: 065
     Dates: start: 20231120
  39. CHLORPHENIRAMINE MALEATE [Concomitant]
     Active Substance: CHLORPHENIRAMINE MALEATE
     Indication: Prophylaxis
     Route: 065
     Dates: start: 20231120

REACTIONS (10)
  - Soft tissue infection [Recovered/Resolved]
  - Thrombocytopenia [Recovered/Resolved]
  - Thrombocytopenia [Recovered/Resolved]
  - Thrombocytopenia [Recovered/Resolved]
  - Neutropenia [Recovered/Resolved]
  - Neutropenia [Recovered/Resolved]
  - Neutropenia [Recovered/Resolved]
  - Thrombocytopenia [Recovered/Resolved]
  - Infusion related reaction [Recovered/Resolved]
  - Cushingoid [Recovered/Resolved]

NARRATIVE: CASE EVENT DATE: 20231122
